FAERS Safety Report 6185634-9 (Version None)
Quarter: 2009Q2

REPORT INFORMATION
  Report Type: 
  Country: None (occurrence: None)
  Receive Date: 20090507
  Receipt Date: 20090427
  Transmission Date: 20091009
  Serious: Yes (Hospitalization, Other)
  Sender: FDA-Public Use
  Company Number: 2009AP001723

PATIENT
  Age: 38 Year
  Sex: Female

DRUGS (7)
  1. RISPERIDONE [Suspect]
     Indication: AGITATION
     Dosage: 1 MG;BID, PO
     Route: 048
  2. RISPERIDONE [Suspect]
     Indication: DELIRIUM
     Dosage: 1 MG;BID, PO
     Route: 048
  3. HALOPERIDOL DECANOATE [Suspect]
     Indication: DELIRIUM
     Dosage: 10 MG;BID, IV
     Route: 042
  4. QUETIAPINE FUMARATE [Suspect]
     Indication: DELIRIUM
     Dosage: 25 MG;BID; PO
     Route: 048
  5. VENLAFAXINE HCL [Concomitant]
  6. ACETAMINOPHEN [Concomitant]
  7. CODEINE SUL TAB [Concomitant]

REACTIONS (3)
  - AKATHISIA [None]
  - CONVULSION [None]
  - NEUROLEPTIC MALIGNANT SYNDROME [None]
